FAERS Safety Report 15313341 (Version 1)
Quarter: 2018Q3

REPORT INFORMATION
  Report Type: Spontaneous
  Country: JP (occurrence: JP)
  Receive Date: 20180823
  Receipt Date: 20180823
  Transmission Date: 20181010
  Serious: Yes (Death, Life-Threatening, Hospitalization, Other)
  Sender: FDA-Public Use
  Company Number: JP-009507513-1808JPN008389

PATIENT
  Age: 69 Year
  Sex: Male
  Weight: 51 kg

DRUGS (3)
  1. LEUPLIN [Suspect]
     Active Substance: LEUPROLIDE ACETATE
     Indication: PROSTATE CANCER
     Dosage: 22.5 MG, Q6MONTHS
     Route: 058
     Dates: start: 20180220
  2. PEMBROLIZUMAB. [Suspect]
     Active Substance: PEMBROLIZUMAB
     Dosage: 200 MG, UNK
     Route: 041
     Dates: start: 20180220
  3. KEYTRUDA [Suspect]
     Active Substance: PEMBROLIZUMAB
     Indication: TRANSITIONAL CELL CARCINOMA
     Dosage: 200 MG, UNK
     Route: 041
     Dates: start: 20180220

REACTIONS (4)
  - Condition aggravated [Fatal]
  - Lymphangiosis carcinomatosa [Fatal]
  - Interstitial lung disease [Recovering/Resolving]
  - Pneumonia bacterial [Fatal]

NARRATIVE: CASE EVENT DATE: 20180222
